FAERS Safety Report 5135294-0 (Version None)
Quarter: 2006Q4

REPORT INFORMATION
  Report Type: 
  Country: None (occurrence: None)
  Receive Date: 20061026
  Receipt Date: 20060921
  Transmission Date: 20070319
  Serious: Yes (Death, Other)
  Sender: FDA-Public Use
  Company Number: PHBS2006BE14527

PATIENT
  Age: 60 Year
  Sex: Male

DRUGS (6)
  1. ZOMETA [Suspect]
     Indication: PROSTATE CANCER
     Dosage: UNK, UNK
     Route: 065
     Dates: start: 20040601
  2. BONEFOS [Concomitant]
     Route: 065
     Dates: start: 20020601, end: 20040601
  3. CASODEX [Concomitant]
     Route: 065
     Dates: start: 20020601, end: 20040601
  4. LUCRIN [Concomitant]
     Route: 065
     Dates: start: 20020601, end: 20040601
  5. ESTRACYT [Concomitant]
     Route: 065
     Dates: start: 20040601, end: 20041101
  6. CELLTOP [Concomitant]
     Route: 065
     Dates: start: 20040601, end: 20041101

REACTIONS (3)
  - LOCAL SWELLING [None]
  - MALIGNANT NEOPLASM PROGRESSION [None]
  - OSTEONECROSIS [None]
